FAERS Safety Report 6007756-5 (Version None)
Quarter: 2008Q4

REPORT INFORMATION
  Report Type: 
  Country: None (occurrence: None)
  Receive Date: 20081217
  Receipt Date: 20080721
  Transmission Date: 20090506
  Serious: No
  Sender: FDA-Public Use
  Company Number: US-ASTRAZENECA-2008UW10927

PATIENT
  Age: 73 Year
  Sex: Male

DRUGS (3)
  1. CRESTOR [Suspect]
     Indication: BLOOD CHOLESTEROL INCREASED
     Route: 048
  2. ATACAND [Concomitant]
  3. TOPROL-XL [Concomitant]

REACTIONS (2)
  - ARTHRITIS [None]
  - MYALGIA [None]
